FAERS Safety Report 8171255-5 (Version None)
Quarter: 2012Q1

REPORT INFORMATION
  Report Type: 
  Country: None (occurrence: None)
  Receive Date: 20120228
  Receipt Date: 20120222
  Transmission Date: 20120608
  Serious: Yes (Other)
  Sender: FDA-Public Use
  Company Number: JP-PFIZER INC-2012017431

PATIENT
  Age: 72 Year
  Sex: Female

DRUGS (4)
  1. IDOMETHINE [Concomitant]
     Dosage: 2 G, 2X/DAY
     Route: 062
     Dates: start: 20110829
  2. LYRICA [Suspect]
     Indication: NEURALGIA
     Dosage: 25 MG, 1X/DAY
     Route: 048
     Dates: start: 20111017, end: 20111121
  3. LOXONIN [Suspect]
     Dosage: 1 DF, 2X/DAY
     Route: 062
     Dates: start: 20111017
  4. PATELL [Concomitant]
     Dosage: UNK
     Route: 062

REACTIONS (4)
  - CONTUSION [None]
  - LIGAMENT SPRAIN [None]
  - FALL [None]
  - DIZZINESS [None]
